FAERS Safety Report 7321676-5 (Version None)
Quarter: 2011Q1

REPORT INFORMATION
  Report Type: 
  Country: None (occurrence: None)
  Receive Date: 20110228
  Receipt Date: 20100709
  Transmission Date: 20110831
  Serious: Yes (Other)
  Sender: FDA-Public Use
  Company Number: US-PFIZER INC-2010075945

PATIENT
  Age: 47 Year
  Sex: Male
  Weight: 92.99 kg

DRUGS (1)
  1. GEODON [Suspect]
     Indication: SCHIZOAFFECTIVE DISORDER
     Dosage: 40MG IN AM/160MG IN PM

REACTIONS (2)
  - SWELLING FACE [None]
  - STRESS [None]
